FAERS Safety Report 17437536 (Version 1)
Quarter: 2020Q1

REPORT INFORMATION
  Report Type: Spontaneous
  Country: US (occurrence: US)
  Receive Date: 20200219
  Receipt Date: 20200219
  Transmission Date: 20200409
  Serious: Yes (Other)
  Sender: FDA-Public Use
  Company Number: US-ALLERGAN-2007638US

PATIENT
  Sex: Female

DRUGS (5)
  1. LINZESS [Suspect]
     Active Substance: LINACLOTIDE
     Indication: CONSTIPATION
     Dosage: 290 MCG
  2. ESTER C [Concomitant]
  3. ADVIL [Concomitant]
     Active Substance: IBUPROFEN
  4. CALCIUM [Concomitant]
     Active Substance: CALCIUM
  5. LASIX [Concomitant]
     Active Substance: FUROSEMIDE
     Dosage: UNK, QD

REACTIONS (3)
  - Hiatus hernia [Unknown]
  - Decreased appetite [Unknown]
  - Therapeutic product effect decreased [Unknown]
